FAERS Safety Report 25052510 (Version 1)
Quarter: 2025Q1

REPORT INFORMATION
  Report Type: Spontaneous
  Country: US (occurrence: US)
  Receive Date: 20250307
  Receipt Date: 20250307
  Transmission Date: 20250409
  Serious: No
  Sender: GALDERMA
  Company Number: US-GALDERMA-US2024018027

PATIENT

DRUGS (1)
  1. DIFFERIN [Suspect]
     Active Substance: ADAPALENE
     Indication: Molluscum contagiosum
     Route: 061

REACTIONS (2)
  - Intentional product use issue [Recovered/Resolved]
  - Drug effective for unapproved indication [Recovered/Resolved]
